FAERS Safety Report 7601750-6 (Version None)
Quarter: 2011Q3

REPORT INFORMATION
  Report Type: 
  Country: None (occurrence: None)
  Receive Date: 20110711
  Receipt Date: 20110706
  Transmission Date: 20111222
  Serious: Yes (Other)
  Sender: FDA-Public Use
  Company Number: BR-PFIZER INC-2011144852

PATIENT
  Age: 54 Year
  Sex: Female

DRUGS (4)
  1. LYRICA [Suspect]
     Indication: FIBROMYALGIA
  2. FLUOXETINE [Concomitant]
     Indication: BACK PAIN
     Dosage: UNK
     Dates: start: 20110401, end: 20110501
  3. AMITRIPTYLINE [Concomitant]
     Indication: BACK PAIN
     Dosage: UNK
     Dates: start: 20110401, end: 20110501
  4. LYRICA [Suspect]
     Indication: BACK PAIN
     Dosage: 75 MG, 3X/DAY (1 CAPSULE EVERY 8 HOURS)
     Route: 048
     Dates: start: 20110418, end: 20110501

REACTIONS (1)
  - HEPATIC ENZYME INCREASED [None]
